FAERS Safety Report 12967215 (Version 1)
Quarter: 2016Q4

REPORT INFORMATION
  Report Type: Report from Study
  Country: CA (occurrence: CA)
  Receive Date: 20161123
  Receipt Date: 20161123
  Transmission Date: 20170207
  Serious: Yes (Other)
  Sender: FDA-Public Use
  Company Number: CA-UCBSA-2016043775

PATIENT
  Age: 45 Year
  Sex: Male

DRUGS (5)
  1. CORTISONE ACETATE. [Concomitant]
     Active Substance: CORTISONE ACETATE
     Dosage: UNK
  2. CELEXA [Concomitant]
     Active Substance: CITALOPRAM HYDROBROMIDE
     Indication: DEPRESSION
     Dosage: 10 MG, ONCE DAILY (QD)
  3. CERTOLIZUMAB PEGOL PSA [Suspect]
     Active Substance: CERTOLIZUMAB PEGOL
     Indication: PSORIATIC ARTHROPATHY
     Dosage: 200 MG, EV 2 WEEKS(QOW)
     Route: 058
     Dates: start: 20150325
  4. CORTISONE ACETATE. [Concomitant]
     Active Substance: CORTISONE ACETATE
     Dosage: 75 MG, ONCE DAILY (QD)
  5. CORTISONE ACETATE. [Concomitant]
     Active Substance: CORTISONE ACETATE
     Indication: PRODUCT USED FOR UNKNOWN INDICATION
     Dosage: 75 MG, ONCE DAILY (QD)

REACTIONS (5)
  - Nausea [Not Recovered/Not Resolved]
  - Fatigue [Unknown]
  - Hip arthroplasty [Unknown]
  - Depression [Unknown]
  - Burning sensation [Not Recovered/Not Resolved]

NARRATIVE: CASE EVENT DATE: 20160804
